FAERS Safety Report 12643956 (Version 4)
Quarter: 2016Q3

REPORT INFORMATION
  Report Type: Spontaneous
  Country: US (occurrence: US)
  Receive Date: 20160811
  Receipt Date: 20160831
  Transmission Date: 20161109
  Serious: Yes (Other)
  Sender: FDA-Public Use
  Company Number: US-HORIZON-RAV-0157-2016

PATIENT
  Age: 58 Year
  Sex: Female

DRUGS (1)
  1. RAVICTI [Suspect]
     Active Substance: GLYCEROL PHENYLBUTYRATE
     Indication: UREA CYCLE ENZYME DEFICIENCY
     Dosage: 5.8 ML TID, REDUCED TO 2 ML TID
     Dates: start: 20160804

REACTIONS (11)
  - Somnolence [Not Recovered/Not Resolved]
  - Malaise [Unknown]
  - Vomiting [Unknown]
  - Dehydration [Unknown]
  - Cough [Not Recovered/Not Resolved]
  - Abnormal behaviour [Not Recovered/Not Resolved]
  - Decreased appetite [Recovering/Resolving]
  - Lethargy [Recovering/Resolving]
  - Asthenia [Not Recovered/Not Resolved]
  - Ammonia increased [Unknown]
  - Chest pain [Not Recovered/Not Resolved]
